FAERS Safety Report 12489578 (Version 1)
Quarter: 2016Q2

REPORT INFORMATION
  Report Type: Spontaneous
  Country: US (occurrence: US)
  Receive Date: 20160622
  Receipt Date: 20160622
  Transmission Date: 20160815
  Serious: Yes (Other)
  Sender: FDA-Public Use
  Company Number: US-AMGEN-USASP2016079565

PATIENT
  Age: 82 Year
  Sex: Male
  Weight: 90.7 kg

DRUGS (7)
  1. PROCRIT [Suspect]
     Active Substance: ERYTHROPOIETIN
     Indication: ANAEMIA
     Dosage: 40000 UNIT, UNK
     Route: 058
  2. ISOSORBIDE. [Concomitant]
     Active Substance: ISOSORBIDE
     Indication: CARDIOVASCULAR DISORDER
     Dosage: 30 MG, UNK
     Route: 048
  3. CARVEDIOL [Concomitant]
     Active Substance: CARVEDILOL
     Indication: CARDIOVASCULAR DISORDER
     Dosage: 25 MG, UNK
     Route: 048
  4. PROCRIT [Suspect]
     Active Substance: ERYTHROPOIETIN
     Indication: RENAL DISORDER
  5. KEPPRA [Concomitant]
     Active Substance: LEVETIRACETAM
     Indication: SEIZURE
     Dosage: 100 MG, UNK
     Route: 048
  6. FOLIC ACID. [Concomitant]
     Active Substance: FOLIC ACID
     Dosage: 1 MG, UNK
     Route: 048
  7. LANTUS [Concomitant]
     Active Substance: INSULIN GLARGINE
     Indication: DIABETES MELLITUS
     Dosage: 100 UNIT, UNK
     Route: 058

REACTIONS (3)
  - Cerebrovascular accident [Unknown]
  - Blood count abnormal [Unknown]
  - Hemiplegia [Unknown]

NARRATIVE: CASE EVENT DATE: 201604
